FAERS Safety Report 9006533 (Version 3)
Quarter: 2013Q2

REPORT INFORMATION
  Report Type: Spontaneous
  Country: US (occurrence: US)
  Receive Date: 20130110
  Receipt Date: 20130619
  Transmission Date: 20140414
  Serious: Yes (Hospitalization)
  Sender: FDA-Public Use
  Company Number: US-BAYER-2013-002695

PATIENT
  Age: 29 Year
  Sex: Female
  Weight: 109 kg

DRUGS (107)
  1. YASMIN [Suspect]
     Indication: CONTRACEPTION
     Dosage: UNK
     Dates: start: 200611, end: 200708
  2. YASMIN [Suspect]
     Indication: MENSTRUAL CYCLE MANAGEMENT
  3. CIPROFLOXACIN [Concomitant]
     Dosage: 500 MG, UNK
     Dates: start: 20070611
  4. CIPROFLOXACIN [Concomitant]
     Dosage: UNK
     Dates: start: 2005, end: 201111
  5. CIPROFLOXACIN [Concomitant]
     Dosage: UNK
     Dates: start: 2006, end: 2009
  6. NASONEX [Concomitant]
     Dosage: 50 MCG
  7. NASONEX [Concomitant]
     Dosage: UNK
     Dates: start: 2005, end: 201111
  8. NASONEX [Concomitant]
     Dosage: UNK
     Dates: start: 2006, end: 2009
  9. GUAIFENESIN W/PHENYLEPHRINE [Concomitant]
     Dosage: 600 MG-20 MG
  10. BENZOYL PEROXIDE [Concomitant]
     Dosage: 4 %, UNK
  11. BENZOYL PEROXIDE [Concomitant]
     Dosage: UNK
     Dates: start: 2006, end: 2009
  12. HYOSCYAMINE SULFATE [Concomitant]
     Dosage: 0.125 MG, UNK
  13. IMODIUM [LOPERAMIDE HYDROCHLORIDE] [Concomitant]
     Dosage: UNK
     Dates: start: 20070626
  14. BIFIDOBACTERIUM LONGUM [Concomitant]
     Dosage: UNK
     Dates: start: 20070626
  15. CIPRO [Concomitant]
     Dosage: UNK
     Dates: start: 20070626
  16. XIFAXAN [Concomitant]
     Dosage: 200 MG, TID
     Dates: start: 20070626
  17. METRONIDAZOLE [Concomitant]
     Dosage: 500 MG, UNK
     Dates: start: 20070702
  18. METRONIDAZOLE [Concomitant]
     Dosage: UNK
     Dates: start: 2002
  19. METRONIDAZOLE [Concomitant]
     Dosage: UNK
     Dates: start: 2006, end: 2009
  20. ALINIA [Concomitant]
     Dosage: UNK
     Dates: start: 20070719
  21. ALINIA [Concomitant]
     Dosage: UNK
     Dates: start: 200605, end: 201111
  22. ALINIA [Concomitant]
     Dosage: UNK
     Dates: start: 2006, end: 2009
  23. ALINIA [Concomitant]
     Dosage: 500 MG, UNK
     Dates: start: 20070705
  24. ANUCORT-HC [Concomitant]
     Dosage: UNK UNK, BID
     Route: 054
  25. DIPHENOXYLATE W/ATROPINE SULFATE [Concomitant]
     Indication: DIARRHOEA
     Dosage: 1 TO 2 TABLETS EVERY 4 TO 6 HOURS
  26. FLORA [Concomitant]
     Indication: DIARRHOEA
     Dosage: 1, QD
  27. METOCLOPRAMIDE [Concomitant]
     Dosage: 10 MG, QID
  28. METOCLOPRAMIDE [Concomitant]
     Dosage: UNK
     Dates: start: 200605, end: 201111
  29. PROMETHAZINE HYDROCHLORIDE [Concomitant]
     Dosage: 25 MG, UNK
  30. PROMETHAZINE HYDROCHLORIDE [Concomitant]
     Dosage: UNK
     Dates: start: 2002
  31. ASACOL [Concomitant]
     Indication: COLITIS
     Dosage: 1200 MG, DAILY, 1 TABLET DAILY
     Dates: start: 20070719
  32. ASACOL [Concomitant]
     Indication: COLITIS
     Dosage: 1 TABLET DAILY
     Dates: start: 2002
  33. ASACOL [Concomitant]
     Indication: COLITIS
     Dosage: 1 TABLET DAILY
     Dates: start: 2007
  34. FLAGYL [Concomitant]
     Dosage: UNK
     Dates: start: 20070719
  35. LOMOTIL [DIPHENOXYLATE HYDROCHLORIDE] [Concomitant]
     Dosage: UNK
     Dates: start: 20070719
  36. PHENERGAN [PROMETHAZINE HYDROCHLORIDE] [Concomitant]
     Dosage: 20 MG, UNK
     Dates: start: 20070719
  37. PROPOFOL [Concomitant]
     Dosage: UNK
     Dates: start: 20070719
  38. NEXIUM [Concomitant]
     Indication: GASTROOESOPHAGEAL REFLUX DISEASE
     Dosage: 40 MG, DAILY
     Dates: start: 20070719
  39. NEXIUM [Concomitant]
     Indication: GASTROOESOPHAGEAL REFLUX DISEASE
     Dosage: 1 TABLET DAILY
     Dates: start: 2006, end: 2009
  40. AMBIEN [Concomitant]
     Indication: SLEEP DISORDER THERAPY
     Dosage: 10 MG, UNK
     Dates: start: 20070815
  41. AMBIEN [Concomitant]
     Indication: SLEEP DISORDER THERAPY
     Dosage: UNK
     Dates: start: 2002
  42. AMBIEN [Concomitant]
     Indication: SLEEP DISORDER THERAPY
     Dosage: UNK
     Dates: start: 2006, end: 2009
  43. AZATHIOPRINE [Concomitant]
     Indication: COLITIS ULCERATIVE
     Dosage: 50 MG, UNK
     Dates: start: 20070815
  44. AZATHIOPRINE [Concomitant]
     Indication: COLITIS ULCERATIVE
     Dosage: UNK
     Dates: start: 2002
  45. AZATHIOPRINE [Concomitant]
     Indication: COLITIS ULCERATIVE
     Dosage: UNK
     Dates: start: 2006, end: 2009
  46. AZATHIOPRINE [Concomitant]
     Indication: COLITIS ULCERATIVE
     Dosage: UNK
     Dates: start: 2007, end: 2009
  47. AZATHIOPRINE [Concomitant]
     Indication: COLITIS ULCERATIVE
     Dosage: 50 MG, UNK
     Dates: start: 20070806
  48. IMURAN [Concomitant]
     Dosage: 75 MG, UNK
     Dates: start: 20070815
  49. PRILOSEC [Concomitant]
     Dosage: 1 TABLET AS NEEDED
     Dates: start: 20070815
  50. PREDNISONE [Concomitant]
     Indication: COLITIS ULCERATIVE
     Dosage: 35 MG,
  51. PREDNISONE [Concomitant]
     Indication: COLITIS ULCERATIVE
     Dosage: 1 TABLET DAILY
     Dates: start: 2002
  52. PREDNISONE [Concomitant]
     Indication: COLITIS ULCERATIVE
     Dosage: 1 TABLET DAILY
     Dates: start: 200605, end: 201111
  53. PREDNISONE [Concomitant]
     Indication: COLITIS ULCERATIVE
     Dosage: 1 TABLET DAILY
     Dates: start: 2007
  54. PREDNISONE [Concomitant]
     Indication: COLITIS ULCERATIVE
  55. PREDNISONE [Concomitant]
     Indication: COLITIS ULCERATIVE
     Dosage: 5 MG, 20 MG
     Dates: start: 20070719
  56. PREDNISONE [Concomitant]
     Indication: COLITIS ULCERATIVE
     Dosage: 5 MG, 20 MG
     Dates: start: 20070809
  57. METFORMIN [Concomitant]
     Dosage: UNK
     Dates: start: 2002
  58. METFORMIN [Concomitant]
     Dosage: UNK
     Dates: start: 200605, end: 201111
  59. METFORMIN [Concomitant]
     Dosage: UNK
     Dates: start: 2006, end: 2009
  60. DIPHENOXYLATE [Concomitant]
     Dosage: UNK
     Dates: start: 200605, end: 201111
  61. HYDROCODONE [Concomitant]
     Dosage: UNK
     Dates: start: 200605, end: 201111
  62. HYDROCODONE [Concomitant]
     Dosage: UNK
     Dates: start: 2002
  63. NYSTATIN [Concomitant]
     Dosage: UNK
     Dates: start: 200605, end: 201111
  64. NYSTATIN [Concomitant]
     Dosage: UNK
     Dates: start: 2006, end: 2009
  65. PROMETHEGAN [Concomitant]
     Dosage: UNK
     Dates: start: 200605, end: 201111
  66. LEXAPRO [Concomitant]
     Indication: DEPRESSION
     Dosage: UNK
     Dates: start: 200605, end: 201111
  67. LEXAPRO [Concomitant]
     Indication: DEPRESSION
     Dosage: UNK
     Dates: start: 2002
  68. LEXAPRO [Concomitant]
     Indication: DEPRESSION
     Dosage: UNK
     Dates: start: 200708
  69. LORAZEPAM [Concomitant]
     Dosage: UNK
     Dates: start: 2002
  70. LORAZEPAM [Concomitant]
     Dosage: UNK
     Dates: start: 200605, end: 201111
  71. LORAZEPAM [Concomitant]
     Dosage: UNK
     Dates: start: 2006, end: 2009
  72. AMOXICILLIN [Concomitant]
     Dosage: UNK
     Dates: start: 2002
  73. AMOXICILLIN [Concomitant]
     Dosage: UNK
     Dates: start: 200605, end: 201111
  74. AMOXICILLIN [Concomitant]
     Dosage: UNK
  75. RANITIDINE [Concomitant]
     Dosage: UNK
     Dates: start: 2002
  76. RANITIDINE [Concomitant]
     Dosage: UNK
     Dates: start: 200605, end: 201111
  77. RANITIDINE [Concomitant]
     Dosage: UNK
     Dates: start: 2006, end: 2009
  78. LUNESTA [Concomitant]
     Dosage: UNK
     Dates: start: 2002
  79. LUNESTA [Concomitant]
     Dosage: UNK
     Dates: start: 200605, end: 201111
  80. FOLIC ACID [Concomitant]
     Dosage: UNK
     Dates: start: 2002
  81. FOLIC ACID [Concomitant]
     Dosage: UNK
     Dates: start: 200605, end: 201111
  82. LEVOTHYROXINE [Concomitant]
     Indication: THYROID HORMONE REPLACEMENT THERAPY
     Dosage: UNK
     Dates: start: 2002
  83. LEVOTHYROXINE [Concomitant]
     Indication: THYROID HORMONE REPLACEMENT THERAPY
     Dosage: UNK
     Dates: start: 200605, end: 201111
  84. DOXYCYCLINE [Concomitant]
     Dosage: UNK
     Dates: start: 2002
  85. OXYCODONE [Concomitant]
     Dosage: UNK
     Dates: start: 2002
  86. IBUPROFEN [Concomitant]
     Dosage: UNK
     Dates: start: 2002
  87. ZITHROMAX [Concomitant]
     Dosage: UNK
     Dates: start: 2002
  88. MEDROXYPROGESTERON [Concomitant]
     Dosage: UNK
     Dates: start: 2002
  89. NITROFURANTOIN [Concomitant]
     Dosage: UNK
     Dates: start: 2002
  90. FERROUS SULFATE [Concomitant]
     Dosage: UNK
     Dates: start: 2002
  91. CHERATUSSIN AC [Concomitant]
     Dosage: UNK
     Dates: start: 2002
  92. DIAZEPAM [Concomitant]
     Dosage: UNK
     Dates: start: 2002
  93. SKELAXIN [Concomitant]
     Dosage: UNK
     Dates: start: 2002
  94. SKELAXIN [Concomitant]
     Dosage: UNK
     Dates: start: 2006, end: 2009
  95. DICYCLOMINE [Concomitant]
     Dosage: UNK
     Dates: start: 2002
  96. TRANSDERM PATCH [Concomitant]
     Dosage: UNK
     Dates: start: 2002
  97. ALPRAZOLAM [Concomitant]
     Dosage: UNK
     Dates: start: 2002
  98. BIAXIN [Concomitant]
     Dosage: UNK
     Dates: start: 2002
  99. VANIQA [Concomitant]
     Dosage: UNK
     Dates: start: 2006, end: 2009
  100. DUAC [Concomitant]
     Dosage: UNK
     Dates: start: 2006, end: 2009
  101. HYDROCHLOROTHIAZID [Concomitant]
     Dosage: UNK
     Dates: start: 2006, end: 2009
  102. ASPIRIN [Concomitant]
     Indication: THROMBOSIS PROPHYLAXIS
     Dosage: UNK
     Dates: start: 2006, end: 2007
  103. POLYETHYLENE GLYCOL [Concomitant]
     Dosage: UNK
     Dates: start: 2006, end: 2009
  104. POLYETHYLENE GLYCOL [Concomitant]
     Dosage: 20-600M
     Dates: start: 20070611
  105. NIZATIDINE [Concomitant]
     Dosage: UNK
     Dates: start: 2002
  106. BUTALBITAL [Concomitant]
     Dosage: UNK
     Dates: start: 2002
  107. NORETHINDRONE [Concomitant]
     Dosage: UNK
     Dates: start: 2002

REACTIONS (7)
  - Deep vein thrombosis [None]
  - Injury [None]
  - Pain [None]
  - General physical health deterioration [None]
  - Anxiety [None]
  - Emotional distress [None]
  - Pain [None]
